FAERS Safety Report 17711859 (Version 3)
Quarter: 2020Q2

REPORT INFORMATION
  Report Type: Spontaneous
  Country: RU (occurrence: RU)
  Receive Date: 20200427
  Receipt Date: 20200505
  Transmission Date: 20200714
  Serious: Yes (Life-Threatening, Hospitalization, Other)
  Sender: FDA-Public Use
  Company Number: RU-PFIZER INC-2020165112

PATIENT
  Age: 13 Year
  Sex: Female

DRUGS (4)
  1. IFOSFAMIDE. [Suspect]
     Active Substance: IFOSFAMIDE
     Indication: EWING^S SARCOMA
     Dosage: UNK, CYCLIC (EVERY 2 CYCLICAL)
  2. ETOPOSIDE. [Suspect]
     Active Substance: ETOPOSIDE
     Indication: EWING^S SARCOMA
     Dosage: UNK, CYCLIC  (EVERY 2 CYCLICAL)
  3. VINCRISTINE [Suspect]
     Active Substance: VINCRISTINE
     Indication: EWING^S SARCOMA
     Dosage: UNK, CYCLIC (EVERY 2 CYCLICAL)
  4. DOXORUBICIN HCL [Suspect]
     Active Substance: DOXORUBICIN HYDROCHLORIDE
     Indication: EWING^S SARCOMA
     Dosage: UNK UNK, CYCLIC (EVERY 2 CYCLICAL)

REACTIONS (5)
  - Febrile neutropenia [Unknown]
  - Bone marrow failure [Unknown]
  - Agranulocytosis [Unknown]
  - Stomatitis [Unknown]
  - Neutropenic colitis [Unknown]
